FAERS Safety Report 13490545 (Version 1)
Quarter: 2017Q2

REPORT INFORMATION
  Report Type: Spontaneous
  Country: JP (occurrence: JP)
  Receive Date: 20170427
  Receipt Date: 20170427
  Transmission Date: 20170830
  Serious: Yes (Life-Threatening, Other)
  Sender: FDA-Public Use
  Company Number: JP-BRISTOL-MYERS SQUIBB COMPANY-BMS-2017-035609

PATIENT
  Age: 87 Year
  Sex: Female
  Weight: 50 kg

DRUGS (12)
  1. CARBOCISTEINE [Concomitant]
     Active Substance: CARBOCYSTEINE
     Indication: PRODUCT USED FOR UNKNOWN INDICATION
     Dosage: UNK
     Route: 048
  2. NOVASTAN [Suspect]
     Active Substance: ARGATROBAN
     Indication: PRODUCT USED FOR UNKNOWN INDICATION
     Dosage: 0.9 ?G/KG, 1 MIN
     Route: 041
     Dates: start: 20160616, end: 20160623
  3. OMEPRAZOLE SODIUM [Concomitant]
     Active Substance: OMEPRAZOLE SODIUM
     Indication: PRODUCT USED FOR UNKNOWN INDICATION
     Dosage: UNK
     Route: 042
  4. LOXOPROFEN                         /00890702/ [Concomitant]
     Active Substance: LOXOPROFEN
     Indication: PRODUCT USED FOR UNKNOWN INDICATION
     Dosage: UNK
     Route: 048
  5. SODIUM PICOSULFATE [Concomitant]
     Active Substance: SODIUM PICOSULFATE
     Indication: PRODUCT USED FOR UNKNOWN INDICATION
     Dosage: UNK
     Route: 048
  6. ELIQUIS [Suspect]
     Active Substance: APIXABAN
     Indication: DEEP VEIN THROMBOSIS
     Route: 048
  7. HEPARIN SODIUM. [Concomitant]
     Active Substance: HEPARIN SODIUM
     Indication: DEEP VEIN THROMBOSIS
     Dosage: UNK
     Route: 051
  8. CALONAL [Concomitant]
     Active Substance: ACETAMINOPHEN
     Indication: PRODUCT USED FOR UNKNOWN INDICATION
     Route: 048
  9. NOVASTAN [Suspect]
     Active Substance: ARGATROBAN
     Indication: HEPARIN-INDUCED THROMBOCYTOPENIA
     Dosage: 0.7 ?G/KG, 1 MIN
     Route: 041
     Dates: start: 20160613, end: 20160616
  10. NOVASTAN [Suspect]
     Active Substance: ARGATROBAN
     Indication: PRODUCT USED FOR UNKNOWN INDICATION
     Dosage: 0.7 ?G/KG, 1 MIN
     Route: 041
     Dates: start: 20160623, end: 20160625
  11. FENTANYL. [Concomitant]
     Active Substance: FENTANYL
     Indication: PRODUCT USED FOR UNKNOWN INDICATION
     Dosage: UNK
     Route: 042
  12. CEFAZOLIN SODIUM. [Concomitant]
     Active Substance: CEFAZOLIN SODIUM
     Indication: PRODUCT USED FOR UNKNOWN INDICATION
     Dosage: UNK
     Route: 042

REACTIONS (1)
  - Hepatic enzyme increased [Recovering/Resolving]

NARRATIVE: CASE EVENT DATE: 20160628
